FAERS Safety Report 6265937-X (Version None)
Quarter: 2009Q3

REPORT INFORMATION
  Report Type: 
  Country: None (occurrence: None)
  Receive Date: 20090709
  Receipt Date: 20090709
  Transmission Date: 20100115
  Serious: Yes (Death)
  Sender: FDA-Public Use
  Company Number: None

PATIENT
  Age: 18 Year
  Sex: Male
  Weight: 83.9154 kg

DRUGS (1)
  1. EQUATE SLEEP MEDICATION [Suspect]
     Dosage: 35 PILLS
     Dates: start: 20081028, end: 20081028

REACTIONS (4)
  - DYSARTHRIA [None]
  - HYPOVENTILATION [None]
  - LOSS OF CONSCIOUSNESS [None]
  - OVERDOSE [None]
